FAERS Safety Report 6824461-3 (Version None)
Quarter: 2010Q3

REPORT INFORMATION
  Report Type: 
  Country: None (occurrence: None)
  Receive Date: 20100708
  Receipt Date: 20070106
  Transmission Date: 20110219
  Serious: No
  Sender: FDA-Public Use
  Company Number: US-PFIZER INC-2006128672

PATIENT
  Sex: Female

DRUGS (3)
  1. CHANTIX [Suspect]
  2. COUMADIN [Concomitant]
  3. VICODIN [Concomitant]

REACTIONS (2)
  - FEELING ABNORMAL [None]
  - NAUSEA [None]
